FAERS Safety Report 7043962-9 (Version None)
Quarter: 2010Q4

REPORT INFORMATION
  Report Type: 
  Country: None (occurrence: None)
  Receive Date: 20101008
  Receipt Date: 20101008
  Transmission Date: 20110411
  Serious: Yes (Other)
  Sender: FDA-Public Use
  Company Number: None

PATIENT
  Age: 48 Year
  Sex: Male
  Weight: 113.6 kg

DRUGS (9)
  1. TRILIPIX [Suspect]
     Dates: start: 20100702, end: 20100902
  2. SINGULAIR [Concomitant]
  3. METFORMIN [Concomitant]
  4. AMARYL [Concomitant]
  5. ACTOS [Concomitant]
  6. ZESTRIL [Concomitant]
  7. NAPROSYN [Concomitant]
  8. LEVEMIR [Concomitant]
  9. PRAVASTATIN [Concomitant]

REACTIONS (2)
  - HYPERKALAEMIA [None]
  - RENAL FAILURE ACUTE [None]
